FAERS Safety Report 7554279-8 (Version None)
Quarter: 2011Q2

REPORT INFORMATION
  Report Type: 
  Country: None (occurrence: None)
  Receive Date: 20110617
  Receipt Date: 20110601
  Transmission Date: 20111010
  Serious: No
  Sender: FDA-Public Use
  Company Number: US-B.I. PHARMACEUTICALS,INC./RIDGEFIELD-2011-BP-14466BP

PATIENT
  Age: 70 Year
  Sex: Female

DRUGS (8)
  1. ATENOLOL [Concomitant]
     Indication: HYPERTENSION
  2. NEURONTIN [Concomitant]
     Indication: NEUROPATHY PERIPHERAL
  3. PLAVIX [Concomitant]
     Indication: CORONARY ARTERY DISEASE
     Dosage: 75 MG
     Dates: start: 20110521
  4. NORVASC [Concomitant]
     Indication: HYPERTENSION
  5. LIBRAX [Concomitant]
     Indication: IRRITABLE BOWEL SYNDROME
  6. DIGOXIN [Concomitant]
     Indication: ATRIAL FIBRILLATION
  7. ACCUPRIL [Concomitant]
     Indication: HYPERTENSION
     Dosage: 40 MG
  8. PRADAXA [Suspect]
     Indication: ATRIAL FIBRILLATION
     Dosage: 300 MG
     Route: 048
     Dates: start: 20110516, end: 20110520

REACTIONS (3)
  - VOMITING [None]
  - DIARRHOEA [None]
  - NAUSEA [None]
